FAERS Safety Report 6844053-X (Version None)
Quarter: 2010Q3

REPORT INFORMATION
  Report Type: 
  Country: None (occurrence: None)
  Receive Date: 20100714
  Receipt Date: 20100714
  Transmission Date: 20110219
  Serious: Yes (Other)
  Sender: FDA-Public Use
  Company Number: None

PATIENT
  Sex: Female
  Weight: 58.9676 kg

DRUGS (2)
  1. CLARAVIS [Suspect]
     Indication: ACNE
     Dosage: 40 MG QD PO
     Route: 048
     Dates: start: 20100516, end: 20100713
  2. CLARAVIS [Suspect]
     Indication: NODULE
     Dosage: 40 MG QD PO
     Route: 048
     Dates: start: 20100516, end: 20100713

REACTIONS (3)
  - ABDOMINAL PAIN [None]
  - PYREXIA [None]
  - RECTAL HAEMORRHAGE [None]
